FAERS Safety Report 18575336 (Version 3)
Quarter: 2021Q1

REPORT INFORMATION
  Report Type: Other
  Country: US (occurrence: US)
  Receive Date: 20201203
  Receipt Date: 20210112
  Transmission Date: 20210419
  Serious: Yes (Other)
  Sender: FDA-Public Use
  Company Number: US-ROCHE-2708046

PATIENT
  Age: 64 Year
  Sex: Male
  Weight: 133.4 kg

DRUGS (16)
  1. NYSTATIN. [Concomitant]
     Active Substance: NYSTATIN
     Dosage: UP TO 4 TIMES PER DAY
     Route: 061
     Dates: start: 20180316
  2. JANUVIA [Concomitant]
     Active Substance: SITAGLIPTIN PHOSPHATE
     Dates: start: 20150212
  3. LISINOPRIL. [Concomitant]
     Active Substance: LISINOPRIL
     Route: 048
     Dates: start: 20150212
  4. FLAXSEED [Concomitant]
     Active Substance: FLAX SEED
     Dates: start: 20150212
  5. TIZANIDINE HCL [Concomitant]
     Active Substance: TIZANIDINE HYDROCHLORIDE
     Route: 048
     Dates: start: 20150212
  6. KETOCONAZOLE. [Concomitant]
     Active Substance: KETOCONAZOLE
     Dosage: 1?2 TIMES PER DAY AS NEEDED FOR ITCHING AND FLACKING
     Dates: start: 20160212
  7. VITAMIN C [Concomitant]
     Active Substance: ASCORBIC ACID
     Route: 048
     Dates: start: 20150212
  8. HYDROCHLOROTHIAZIDE. [Concomitant]
     Active Substance: HYDROCHLOROTHIAZIDE
     Route: 048
     Dates: start: 20150212
  9. OCREVUS [Suspect]
     Active Substance: OCRELIZUMAB
     Indication: RELAPSING-REMITTING MULTIPLE SCLEROSIS
     Dosage: DATE OF TREATMENT: 02/JAN/2018 (300 MG), 29/JUN/2018, 31/DEC/2018, 01/JUL/2019, 13/JAN/2020, 17/AUG/
     Route: 042
     Dates: start: 20171218, end: 20200713
  10. CBD OIL [Concomitant]
     Active Substance: CANNABIDIOL\HERBALS
     Dates: start: 20150212
  11. GARLIC. [Concomitant]
     Active Substance: GARLIC
     Dates: start: 20180824
  12. CINNAMON. [Concomitant]
     Active Substance: CINNAMON
     Route: 048
  13. VITAMIN D3 [Concomitant]
     Active Substance: CHOLECALCIFEROL
     Route: 048
     Dates: start: 20150212
  14. CIALIS [Concomitant]
     Active Substance: TADALAFIL
     Route: 048
     Dates: start: 20150609
  15. OXYBUTYNIN CHLORIDE ER [Concomitant]
     Active Substance: OXYBUTYNIN CHLORIDE
     Route: 048
     Dates: start: 20150212
  16. CHROMIUM [Concomitant]
     Active Substance: CHROMIC CHLORIDE\CHROMIUM
     Route: 048

REACTIONS (2)
  - COVID-19 [Recovering/Resolving]
  - Venous thrombosis [Unknown]

NARRATIVE: CASE EVENT DATE: 20201019
